FAERS Safety Report 14988771 (Version 1)
Quarter: 2018Q2

REPORT INFORMATION
  Report Type: Spontaneous
  Country: US (occurrence: US)
  Receive Date: 20180520
  Receipt Date: 20180520
  Transmission Date: 20180711
  Serious: Yes (Other)
  Sender: FDA-Public Use
  Company Number: None

PATIENT
  Age: 53 Year
  Sex: Male
  Weight: 157.5 kg

DRUGS (6)
  1. AVAPRO (GENERIC) [Concomitant]
  2. VENLAFAXINE HYDROCHLORIDE EXTENDED-RELEASE CAPSULES USP 150MG [Suspect]
     Active Substance: VENLAFAXINE HYDROCHLORIDE
     Indication: DEPRESSION
     Dosage: ?          QUANTITY:1 CAPSULE(S);?
     Route: 048
     Dates: start: 20180517, end: 20180520
  3. CARDIZEM (GENERIC) [Concomitant]
  4. IBUPROFEN. [Concomitant]
     Active Substance: IBUPROFEN
  5. LIPITOR (GENERIC VERSION) [Concomitant]
  6. CPAP MACHINE [Concomitant]

REACTIONS (2)
  - Drug ineffective [None]
  - Product substitution issue [None]

NARRATIVE: CASE EVENT DATE: 20180519
